FAERS Safety Report 11399029 (Version 1)
Quarter: 2015Q3

REPORT INFORMATION
  Report Type: Report from Study
  Country: US (occurrence: US)
  Receive Date: 20150820
  Receipt Date: 20150820
  Transmission Date: 20151125
  Serious: Yes (Death, Other)
  Sender: FDA-Public Use
  Company Number: US-ASTELLAS-2015US021151

PATIENT
  Sex: Male

DRUGS (9)
  1. ALIMTA [Concomitant]
     Active Substance: PEMETREXED DISODIUM
     Indication: PRODUCT USED FOR UNKNOWN INDICATION
     Dosage: UNK, OTHER (3 MONTHS)
     Route: 065
     Dates: start: 20090310, end: 200906
  2. OXYCODONE [Concomitant]
     Active Substance: OXYCODONE
     Indication: PRODUCT USED FOR UNKNOWN INDICATION
     Dosage: UNK UNK, UNKNOWN FREQ.
     Route: 065
  3. GEMZAR [Concomitant]
     Active Substance: GEMCITABINE HYDROCHLORIDE
     Indication: PRODUCT USED FOR UNKNOWN INDICATION
     Dosage: 1000 MG/M2, DAY 1,8 AND 15 EVERY 4 WEEKS (10 MONTHS)
     Route: 065
     Dates: start: 200910, end: 201008
  4. ERLOTINIB [Suspect]
     Active Substance: ERLOTINIB
     Dosage: 100 UNK, UNK
     Route: 048
  5. LYRICA [Concomitant]
     Active Substance: PREGABALIN
     Indication: PRODUCT USED FOR UNKNOWN INDICATION
     Route: 065
  6. AVASTIN [Suspect]
     Active Substance: BEVACIZUMAB
     Indication: LUNG NEOPLASM MALIGNANT
     Dosage: UNK, EVERY 3 WEEKS
     Route: 065
     Dates: start: 200903, end: 200909
  7. ERLOTINIB [Suspect]
     Active Substance: ERLOTINIB
     Indication: LUNG NEOPLASM MALIGNANT
     Route: 048
     Dates: start: 200903
  8. NEXIUM [Concomitant]
     Active Substance: ESOMEPRAZOLE MAGNESIUM
     Indication: GASTROOESOPHAGEAL REFLUX DISEASE
     Dosage: UNK UNK, UNKNOWN FREQ.
     Route: 065
  9. CYMBALTA [Concomitant]
     Active Substance: DULOXETINE HYDROCHLORIDE
     Indication: NEUROPATHY PERIPHERAL
     Dosage: 60 MG, ONCE DAILY AT BEDTIME
     Route: 065

REACTIONS (7)
  - Fall [Unknown]
  - Malignant neoplasm progression [Fatal]
  - Depression [Unknown]
  - Chest injury [Unknown]
  - Neuropathy peripheral [Unknown]
  - Arthritis [Unknown]
  - Pain in extremity [Unknown]
